FAERS Safety Report 7527973-2 (Version None)
Quarter: 2011Q2

REPORT INFORMATION
  Report Type: 
  Country: None (occurrence: None)
  Receive Date: 20110531
  Receipt Date: 20110516
  Transmission Date: 20111010
  Serious: Yes (Other)
  Sender: FDA-Public Use
  Company Number: JHP201100160

PATIENT
  Age: 32 Year
  Sex: Female

DRUGS (1)
  1. KETALAR [Suspect]
     Indication: SUBSTANCE USE
     Dosage: INHALATION
     Route: 055

REACTIONS (6)
  - BLOOD ALKALINE PHOSPHATASE INCREASED [None]
  - BILIARY TRACT DISORDER [None]
  - BILE DUCT STENOSIS [None]
  - GAMMA-GLUTAMYLTRANSFERASE INCREASED [None]
  - URINARY TRACT DISORDER [None]
  - BILIARY DILATATION [None]
